FAERS Safety Report 21463250 (Version 4)
Quarter: 2024Q1

REPORT INFORMATION
  Report Type: Spontaneous
  Country: US (occurrence: US)
  Receive Date: 20221017
  Receipt Date: 20240102
  Transmission Date: 20240409
  Serious: No
  Sender: FDA-Public Use
  Company Number: US-SA-SAC20221014000550

PATIENT
  Age: 64 Year
  Sex: Male

DRUGS (1)
  1. KEVZARA [Suspect]
     Active Substance: SARILUMAB
     Indication: Rheumatoid arthritis
     Dosage: 200 MG, QOW
     Route: 058

REACTIONS (7)
  - Weight increased [Unknown]
  - Night sweats [Unknown]
  - Irritable bowel syndrome [Unknown]
  - Dyspepsia [Unknown]
  - Abdominal distension [Unknown]
  - Abdominal pain [Unknown]
  - Drug ineffective [Unknown]
